FAERS Safety Report 7098609-2 (Version None)
Quarter: 2010Q4

REPORT INFORMATION
  Report Type: 
  Country: None (occurrence: None)
  Receive Date: 20101112
  Receipt Date: 20101103
  Transmission Date: 20110411
  Serious: Yes (Other)
  Sender: FDA-Public Use
  Company Number: CA-JNJFOC-20101102013

PATIENT
  Sex: Female
  Weight: 100 kg

DRUGS (12)
  1. REMICADE [Suspect]
     Indication: UVEITIS
     Route: 042
  2. REMICADE [Suspect]
     Route: 042
  3. INSULIN [Concomitant]
  4. METHOTREXATE [Concomitant]
  5. FOLIC ACID [Concomitant]
  6. SUCRALFATE [Concomitant]
  7. METOCLOPRAMIDE [Concomitant]
  8. DULOXETINE [Concomitant]
  9. ZOPLICONE [Concomitant]
  10. CYMBALTA [Concomitant]
  11. OXYCONTIN [Concomitant]
  12. PERCOCET [Concomitant]

REACTIONS (2)
  - FALL [None]
  - MUSCLE STRAIN [None]
